FAERS Safety Report 24791880 (Version 1)
Quarter: 2024Q4

REPORT INFORMATION
  Report Type: Report from Study
  Country: US (occurrence: US)
  Receive Date: 20241231
  Receipt Date: 20241231
  Transmission Date: 20250115
  Serious: Yes (Hospitalization)
  Sender: ABBVIE
  Company Number: US-ABBVIE-6066137

PATIENT
  Sex: Female

DRUGS (5)
  1. SKYRIZI [Suspect]
     Active Substance: RISANKIZUMAB-RZAA
     Indication: Product used for unknown indication
     Route: 058
  2. LEVAQUIN [Concomitant]
     Active Substance: LEVOFLOXACIN
     Indication: Escherichia infection
     Dates: start: 20241223
  3. VANCOMYCIN [Concomitant]
     Active Substance: VANCOMYCIN
     Indication: Clostridium difficile infection
     Dates: start: 20241223
  4. POTASSIUM [Concomitant]
     Active Substance: POTASSIUM
     Indication: Blood electrolytes abnormal
     Dates: start: 20241223
  5. MAGNESIUM [Concomitant]
     Active Substance: MAGNESIUM
     Indication: Blood electrolytes abnormal
     Dates: start: 20241223

REACTIONS (1)
  - Infection [Recovering/Resolving]
